FAERS Safety Report 6386045-3 (Version None)
Quarter: 2009Q4

REPORT INFORMATION
  Report Type: 
  Country: None (occurrence: None)
  Receive Date: 20091002
  Receipt Date: 20081031
  Transmission Date: 20100525
  Serious: No
  Sender: FDA-Public Use
  Company Number: US-ASTRAZENECA-2008UW24490

PATIENT
  Age: 81 Year
  Sex: Female
  Weight: 67.1 kg

DRUGS (5)
  1. ARIMIDEX [Suspect]
     Indication: BREAST CANCER FEMALE
     Route: 048
     Dates: start: 20080901
  2. TYLENOL (CAPLET) [Concomitant]
     Dosage: AS NEEDED
  3. SIMVASTATIN [Concomitant]
  4. THYROID MEDICATION [Concomitant]
  5. MEDICATION FOR MUSCLE CRAMPS [Concomitant]

REACTIONS (4)
  - BONE DENSITY DECREASED [None]
  - DRY MOUTH [None]
  - GINGIVAL BLEEDING [None]
  - MUSCLE SPASMS [None]
